FAERS Safety Report 6618845-6 (Version None)
Quarter: 2010Q1

REPORT INFORMATION
  Report Type: 
  Country: None (occurrence: None)
  Receive Date: 20100305
  Receipt Date: 20100305
  Transmission Date: 20100710
  Serious: Yes (Death)
  Sender: FDA-Public Use
  Company Number: None

PATIENT
  Age: 58 Year
  Sex: Male

DRUGS (10)
  1. REVLIMID [Suspect]
     Indication: MULTIPLE MYELOMA
     Dosage: 25MG DAILY X21DAYS ORAL
     Route: 048
     Dates: start: 20080912, end: 20090201
  2. REVLIMID [Suspect]
     Indication: MULTIPLE MYELOMA
     Dosage: 25MG DAILY X21DAYS ORAL
     Route: 048
     Dates: start: 20090605, end: 20090904
  3. ZOLPIDEM [Concomitant]
  4. HALOPERIDOL [Concomitant]
  5. DIAZEPAM [Concomitant]
  6. LAMOTRIGINE [Concomitant]
  7. SINGULAIR [Concomitant]
  8. FLUTICASONE [Concomitant]
  9. FAMOTIDINE [Concomitant]
  10. PROCHLOROPERAZINE [Concomitant]

REACTIONS (7)
  - CANCER PAIN [None]
  - DISEASE PROGRESSION [None]
  - HYPERCALCAEMIA [None]
  - MULTIPLE MYELOMA [None]
  - PATHOLOGICAL FRACTURE [None]
  - RENAL FAILURE ACUTE [None]
  - THORACIC VERTEBRAL FRACTURE [None]
